FAERS Safety Report 6522106-3 (Version None)
Quarter: 2009Q4

REPORT INFORMATION
  Report Type: 
  Country: None (occurrence: None)
  Receive Date: 20091229
  Receipt Date: 20091229
  Transmission Date: 20100525
  Serious: Yes (Hospitalization)
  Sender: FDA-Public Use
  Company Number: None

PATIENT
  Age: 33 Year
  Sex: Female
  Weight: 104 kg

DRUGS (3)
  1. WELLBUTRIN [Suspect]
     Indication: SUICIDE ATTEMPT
     Dosage: 7 + 6 PILLS PO
     Route: 048
     Dates: start: 20091023
  2. WELLBUTRIN [Suspect]
     Indication: SUICIDE ATTEMPT
     Dosage: 7 + 6 PILLS PO
     Route: 048
     Dates: start: 20091025
  3. ETOH [Concomitant]

REACTIONS (3)
  - ALCOHOL USE [None]
  - INCORRECT DOSE ADMINISTERED [None]
  - SUICIDE ATTEMPT [None]
